FAERS Safety Report 17537659 (Version 1)
Quarter: 2020Q1

REPORT INFORMATION
  Report Type: Spontaneous
  Country: DE (occurrence: DE)
  Receive Date: 20200313
  Receipt Date: 20200313
  Transmission Date: 20200409
  Serious: Yes (Other)
  Sender: FDA-Public Use
  Company Number: NVSC2020DE065902

PATIENT
  Age: 17 Year
  Sex: Female
  Weight: 50 kg

DRUGS (3)
  1. DESLORATADINE. [Suspect]
     Active Substance: DESLORATADINE
     Indication: EOSINOPHIL COUNT INCREASED
     Dosage: UNK
     Route: 048
     Dates: start: 20191202
  2. DESLORATADINE. [Suspect]
     Active Substance: DESLORATADINE
     Indication: GASTROINTESTINAL INFLAMMATION
  3. DESLORATADINE. [Suspect]
     Active Substance: DESLORATADINE
     Indication: IRRITABLE BOWEL SYNDROME

REACTIONS (11)
  - Intentional self-injury [Not Recovered/Not Resolved]
  - Paranoia [Not Recovered/Not Resolved]
  - Hypoaesthesia [Not Recovered/Not Resolved]
  - Persecutory delusion [Unknown]
  - Aggression [Not Recovered/Not Resolved]
  - Hallucination, auditory [Not Recovered/Not Resolved]
  - Insomnia [Not Recovered/Not Resolved]
  - Movement disorder [Not Recovered/Not Resolved]
  - Hallucination [Not Recovered/Not Resolved]
  - Gait disturbance [Not Recovered/Not Resolved]
  - Restlessness [Not Recovered/Not Resolved]

NARRATIVE: CASE EVENT DATE: 20191208
